FAERS Safety Report 18981421 (Version 1)
Quarter: 2021Q1

REPORT INFORMATION
  Report Type: Spontaneous
  Country: US (occurrence: US)
  Receive Date: 20210308
  Receipt Date: 20210308
  Transmission Date: 20210420
  Serious: No
  Sender: FDA-Public Use
  Company Number: US-KYOWAKIRIN-2021BKK003480

PATIENT

DRUGS (2)
  1. CRYSVITA [Suspect]
     Active Substance: BUROSUMAB-TWZA
     Indication: PHOSPHORUS METABOLISM DISORDER
     Dosage: STRENGTH 20 AND 30 MG/ML COMBINED TO ACHIEVE DOSE OF 80 MG, EVERY 14 DAYS
     Route: 058
     Dates: start: 20191220
  2. CRYSVITA [Suspect]
     Active Substance: BUROSUMAB-TWZA
     Indication: PHOSPHORUS METABOLISM DISORDER
     Dosage: STRENGTH 20 AND 30 MG/ML COMBINED TO ACHIEVE DOSE OF 80 MG, EVERY 14 DAYS
     Route: 058
     Dates: start: 20191220

REACTIONS (1)
  - Product use in unapproved indication [Not Recovered/Not Resolved]

NARRATIVE: CASE EVENT DATE: 20191220
